FAERS Safety Report 11805983 (Version 2)
Quarter: 2016Q1

REPORT INFORMATION
  Report Type: Spontaneous
  Country: US (occurrence: US)
  Receive Date: 20151207
  Receipt Date: 20160125
  Transmission Date: 20160525
  Serious: No
  Sender: FDA-Public Use
  Company Number: US-009507513-1512USA003133

PATIENT
  Sex: Male

DRUGS (3)
  1. ZONTIVITY [Suspect]
     Active Substance: VORAPAXAR SULFATE
     Indication: PERIPHERAL ARTERIAL OCCLUSIVE DISEASE
     Dosage: UNSPECIFIED DOSE/ ONCE A DAY
     Route: 048
  2. ASPIRIN. [Concomitant]
     Active Substance: ASPIRIN
  3. PLAVIX [Concomitant]
     Active Substance: CLOPIDOGREL BISULFATE

REACTIONS (1)
  - Haemorrhage [Recovered/Resolved]
